FAERS Safety Report 10331408 (Version 2)
Quarter: 2014Q3

REPORT INFORMATION
  Report Type: Spontaneous
  Country: US (occurrence: US)
  Receive Date: 20140722
  Receipt Date: 20140728
  Transmission Date: 20150326
  Serious: Yes (Other)
  Sender: FDA-Public Use
  Company Number: US-PFIZER INC-2014200653

PATIENT
  Age: 27 Year
  Sex: Male
  Weight: 103.86 kg

DRUGS (2)
  1. SOMA [Concomitant]
     Active Substance: CARISOPRODOL
     Dosage: 350 MG, AS NEEDED (UP TO FOUR TIMES A DAY)
  2. LYRICA [Suspect]
     Active Substance: PREGABALIN
     Indication: SPINAL CORD INJURY
     Dosage: 150 MG, 3X/DAY
     Route: 048
     Dates: start: 201406, end: 2014

REACTIONS (13)
  - Malaise [Unknown]
  - Feeling abnormal [Unknown]
  - Decreased appetite [Recovered/Resolved]
  - Blood pressure abnormal [Recovered/Resolved]
  - Convulsion [Unknown]
  - Drug withdrawal syndrome [Unknown]
  - Hyperhidrosis [Recovered/Resolved]
  - Insomnia [Recovered/Resolved]
  - Blood glucose abnormal [Recovered/Resolved]
  - Memory impairment [Unknown]
  - Body temperature fluctuation [Unknown]
  - Visual impairment [Unknown]
  - Paraesthesia [Recovered/Resolved]

NARRATIVE: CASE EVENT DATE: 2014
